FAERS Safety Report 7051269-9 (Version None)
Quarter: 2010Q4

REPORT INFORMATION
  Report Type: 
  Country: None (occurrence: None)
  Receive Date: 20101019
  Receipt Date: 20101012
  Transmission Date: 20110411
  Serious: Yes (Other)
  Sender: FDA-Public Use
  Company Number: JP-BRISTOL-MYERS SQUIBB COMPANY-15323207

PATIENT
  Age: 37 Year
  Sex: Female
  Weight: 50 kg

DRUGS (5)
  1. ABILIFY [Suspect]
     Indication: SCHIZOPHRENIA
     Route: 048
     Dates: start: 20070404
  2. PAXIL [Suspect]
     Indication: OBSESSIVE-COMPULSIVE DISORDER
     Dosage: TABLET.
     Route: 048
     Dates: start: 20100710, end: 20100915
  3. RIVOTRIL [Concomitant]
     Dosage: POWDER
     Route: 048
  4. ZYPREXA [Concomitant]
     Dosage: TABLET.
     Route: 048
     Dates: start: 20070110
  5. RISPERDAL [Concomitant]
     Dosage: TABS
     Dates: end: 20091118

REACTIONS (3)
  - ABORTION EARLY [None]
  - DRUG EXPOSURE DURING PREGNANCY [None]
  - PREGNANCY [None]
